FAERS Safety Report 9612693 (Version 1)
Quarter: 2013Q4

REPORT INFORMATION
  Report Type: Spontaneous
  Country: US (occurrence: US)
  Receive Date: 20131010
  Receipt Date: 20131010
  Transmission Date: 20140711
  Serious: No
  Sender: FDA-Public Use
  Company Number: US-BAXTER-2013BAX017810

PATIENT
  Sex: Male

DRUGS (6)
  1. DIANEAL PD2 [Suspect]
     Indication: PERITONEAL DIALYSIS
     Route: 033
  2. DIANEAL PD2 [Suspect]
     Route: 033
  3. DIANEAL PD2 [Suspect]
     Indication: PERITONEAL DIALYSIS
     Route: 033
  4. DIANEAL PD2 [Suspect]
     Route: 033
  5. DIANEAL PD2 [Suspect]
     Route: 033
  6. DIANEAL PD2 [Suspect]
     Indication: PERITONEAL DIALYSIS
     Route: 033

REACTIONS (4)
  - Swelling [Not Recovered/Not Resolved]
  - Oedema [Not Recovered/Not Resolved]
  - Blood pressure decreased [Recovered/Resolved]
  - Fluid retention [Not Recovered/Not Resolved]
